FAERS Safety Report 6464964-7 (Version None)
Quarter: 2009Q4

REPORT INFORMATION
  Report Type: 
  Country: None (occurrence: None)
  Receive Date: 20091201
  Receipt Date: 20091102
  Transmission Date: 20100525
  Serious: No
  Sender: FDA-Public Use
  Company Number: US-BAYER-200916495BCC

PATIENT
  Age: 70 Year
  Sex: Female
  Weight: 64 kg

DRUGS (4)
  1. ALEVE (CAPLET) [Suspect]
     Indication: ARTHRITIS
     Dosage: TOTAL DAILY DOSE: 220 MG  UNIT DOSE: 220 MG
     Route: 048
     Dates: start: 20091028, end: 20091029
  2. SYNTHROID [Concomitant]
     Route: 065
  3. BABY ASPIRIN [Concomitant]
     Route: 065
  4. AMLODIPINE [Concomitant]
     Route: 065

REACTIONS (1)
  - ABDOMINAL PAIN [None]
